FAERS Safety Report 14467979 (Version 2)
Quarter: 2022Q3

REPORT INFORMATION
  Report Type: Spontaneous
  Country: US (occurrence: US)
  Receive Date: 20180131
  Receipt Date: 20220715
  Transmission Date: 20221027
  Serious: Yes (Other)
  Sender: FDA-Public Use
  Company Number: US-PFIZER INC-2018039390

PATIENT
  Age: 52 Year
  Sex: Male

DRUGS (1)
  1. RAPAMUNE [Suspect]
     Active Substance: SIROLIMUS
     Dosage: 5 MG, DAILY

REACTIONS (2)
  - Deafness unilateral [Unknown]
  - Malaise [Unknown]
